FAERS Safety Report 4583785-3 (Version None)
Quarter: 2005Q1

REPORT INFORMATION
  Report Type: 
  Country: None (occurrence: None)
  Receive Date: 20050216
  Receipt Date: 20030821
  Transmission Date: 20050727
  Serious: No
  Sender: FDA-Public Use
  Company Number: US-GLAXOSMITHKLINE-A0422947A

PATIENT
  Age: 79 Year
  Sex: Male

DRUGS (6)
  1. LOTRONEX [Suspect]
     Indication: IRRITABLE BOWEL SYNDROME
     Dosage: 1MG PER DAY
     Route: 048
  2. HYDROCHLOROTHIAZIDE [Concomitant]
  3. POTASSIUM CHLORIDE [Concomitant]
  4. ZOCOR [Concomitant]
  5. HYDROCHLOROTHIAZIDE [Concomitant]
  6. LOMOTIL [Concomitant]

REACTIONS (4)
  - ABNORMAL FAECES [None]
  - CONSTIPATION [None]
  - DRUG INEFFECTIVE [None]
  - DRUG TOLERANCE [None]
